FAERS Safety Report 16872148 (Version 1)
Quarter: 2019Q3

REPORT INFORMATION
  Report Type: Spontaneous
  Country: US (occurrence: US)
  Receive Date: 20190807
  Receipt Date: 20190807
  Transmission Date: 20191007
  Serious: No
  Sender: FDA-Public Use
  Company Number: None

PATIENT
  Sex: Female

DRUGS (1)
  1. OCTREOTIDE. [Suspect]
     Active Substance: OCTREOTIDE
     Indication: PRODUCT USED FOR UNKNOWN INDICATION
     Dosage: STRENGTH 50 MCG/ML
     Route: 058
     Dates: start: 201907

REACTIONS (5)
  - Anxiety [None]
  - Hyperhidrosis [None]
  - Renal pain [None]
  - Muscle spasms [None]
  - Panic attack [None]
